FAERS Safety Report 23644627 (Version 1)
Quarter: 2024Q1

REPORT INFORMATION
  Report Type: Spontaneous
  Country: DK (occurrence: DK)
  Receive Date: 20240318
  Receipt Date: 20240318
  Transmission Date: 20240410
  Serious: Yes (Life-Threatening, Hospitalization)
  Sender: FDA-Public Use
  Company Number: None

PATIENT
  Age: 75 Year
  Sex: Male

DRUGS (1)
  1. SYNJARDY [Suspect]
     Active Substance: EMPAGLIFLOZIN\METFORMIN HYDROCHLORIDE
     Indication: Diabetes mellitus
     Dosage: STRENGTH: 12.5MG/1000MG?UNIT DOSE 2
     Route: 048
     Dates: start: 20200330, end: 20230516

REACTIONS (6)
  - Asthenia [Unknown]
  - General physical health deterioration [Unknown]
  - Vomiting [Unknown]
  - Diarrhoea [Unknown]
  - Acute kidney injury [Unknown]
  - Lactic acidosis [Recovered/Resolved]

NARRATIVE: CASE EVENT DATE: 20230501
